FAERS Safety Report 6076010-8 (Version None)
Quarter: 2009Q1

REPORT INFORMATION
  Report Type: 
  Country: None (occurrence: None)
  Receive Date: 20090212
  Receipt Date: 20081222
  Transmission Date: 20090719
  Serious: Yes (Other)
  Sender: FDA-Public Use
  Company Number: US-PFIZER INC-2008092024

PATIENT
  Sex: Female
  Weight: 66.213 kg

DRUGS (18)
  1. CHANTIX [Suspect]
     Indication: TOBACCO ABUSE
     Dosage: 1 MG, 2X/DAY
     Dates: start: 20080909, end: 20081015
  2. FUROSEMIDE [Concomitant]
     Dosage: 20 MG, 1X/DAY
  3. ATACAND [Concomitant]
     Dosage: 8 MG, UNK
  4. KLOR-CON [Concomitant]
     Dosage: 8 MEQ, 1X/DAY
  5. CITALOPRAM HYDROBROMIDE [Concomitant]
     Dosage: 20 MG, UNK
  6. ZETIA [Concomitant]
     Dosage: 10 MG, 1X/DAY
  7. CRESTOR [Concomitant]
     Dosage: 40 MG, 1X/DAY
  8. DARVOCET-N 100 [Concomitant]
     Indication: BACK PAIN
     Dosage: UNK
  9. NIASPAN [Concomitant]
     Dosage: 500 MG, 1X/DAY
  10. TOPROL-XL [Concomitant]
     Dosage: 25 MG, 1X/DAY
  11. REGLAN [Concomitant]
     Dosage: 10 MG, 3X/DAY
  12. NASONEX [Concomitant]
     Dosage: UNK
  13. XANAX [Concomitant]
     Indication: TENSION
     Dosage: 0.5 MG, AS NEEDED
  14. ALLEGRA [Concomitant]
     Indication: HYPERSENSITIVITY
     Dosage: 180 MG, AS NEEDED
  15. AMBIEN [Concomitant]
     Indication: SLEEP DISORDER
     Dosage: 10 MG, AS NEEDED
  16. FISH OIL [Concomitant]
     Dosage: UNK
  17. ASPIRIN [Concomitant]
     Dosage: 325 MG, 1X/DAY
  18. PLAVIX [Concomitant]
     Dosage: 75 MG, 1X/DAY

REACTIONS (6)
  - ATAXIA [None]
  - DISORIENTATION [None]
  - MEMORY IMPAIRMENT [None]
  - PRESYNCOPE [None]
  - ROAD TRAFFIC ACCIDENT [None]
  - TREMOR [None]
